FAERS Safety Report 10558768 (Version 2)
Quarter: 2015Q3

REPORT INFORMATION
  Report Type: Report from Study
  Country: US (occurrence: US)
  Receive Date: 20141031
  Receipt Date: 20150818
  Transmission Date: 20151125
  Serious: No
  Sender: FDA-Public Use
  Company Number: US-GILEAD-2014-0120944

PATIENT
  Age: 44 Year
  Sex: Female

DRUGS (15)
  1. ALDACTONE [Concomitant]
     Active Substance: SPIRONOLACTONE
  2. FOLIC ACID. [Concomitant]
     Active Substance: FOLIC ACID
  3. ADVAIR HFA [Concomitant]
     Active Substance: FLUTICASONE PROPIONATE\SALMETEROL XINAFOATE
  4. ELMIRON [Concomitant]
     Active Substance: PENTOSAN POLYSULFATE SODIUM
  5. FUROSEMIDE. [Concomitant]
     Active Substance: FUROSEMIDE
  6. OMEPRAZOLE. [Concomitant]
     Active Substance: OMEPRAZOLE
  7. VITAMIN D [Concomitant]
     Active Substance: CHOLECALCIFEROL
  8. TOPAMAX [Concomitant]
     Active Substance: TOPIRAMATE
  9. OXYBUTYNIN [Concomitant]
     Active Substance: OXYBUTYNIN
  10. METOPROLOL                         /00376902/ [Concomitant]
     Active Substance: METOPROLOL
  11. AMBRISENTAN [Suspect]
     Active Substance: AMBRISENTAN
     Indication: PULMONARY ARTERIAL HYPERTENSION
     Dosage: 5 MG, QD
     Route: 065
     Dates: start: 20140403
  12. NASONEX [Concomitant]
     Active Substance: MOMETASONE FUROATE
  13. AMBRISENTAN [Suspect]
     Active Substance: AMBRISENTAN
     Indication: SICKLE CELL ANAEMIA
  14. CETRIZINE [Concomitant]
     Active Substance: CETIRIZINE HYDROCHLORIDE
  15. CALCIUM [Concomitant]
     Active Substance: CALCIUM

REACTIONS (1)
  - Rash [Unknown]

NARRATIVE: CASE EVENT DATE: 20140429
